FAERS Safety Report 9816165 (Version 2)
Quarter: 2014Q2

REPORT INFORMATION
  Report Type: Report from Study
  Country: US (occurrence: US)
  Receive Date: 20140114
  Receipt Date: 20140619
  Transmission Date: 20141212
  Serious: Yes (Hospitalization, Other)
  Sender: FDA-Public Use
  Company Number: US-ACTELION-A-US2014-93294

PATIENT
  Age: 54 Year
  Sex: Male

DRUGS (3)
  1. TRACLEER [Suspect]
     Indication: COR PULMONALE CHRONIC
     Dosage: UNK
     Route: 048
  2. SILDENAFIL [Concomitant]
  3. COUMADIN [Concomitant]

REACTIONS (4)
  - Atrial fibrillation [Unknown]
  - Cardiac disorder [Unknown]
  - Memory impairment [Unknown]
  - Fatigue [Unknown]
